FAERS Safety Report 7737643-3 (Version None)
Quarter: 2011Q3

REPORT INFORMATION
  Report Type: 
  Country: None (occurrence: None)
  Receive Date: 20110908
  Receipt Date: 20110906
  Transmission Date: 20111222
  Serious: Yes (Other)
  Sender: FDA-Public Use
  Company Number: JP-PFIZER INC-2011169210

PATIENT
  Age: 29 Year
  Sex: Male
  Weight: 65 kg

DRUGS (5)
  1. VARENICLINE TARTRATE [Suspect]
     Dosage: 1MG, IN THE EVENING OR 1 MG, 2X/DAY
     Route: 048
     Dates: start: 20100101, end: 20101115
  2. VARENICLINE TARTRATE [Suspect]
     Indication: NICOTINE DEPENDENCE
     Dosage: 0.5 MG, 1X/DAY
     Route: 048
     Dates: start: 20100823, end: 20100825
  3. VARENICLINE TARTRATE [Suspect]
     Dosage: 1 MG, 2X/DAY
     Route: 048
     Dates: start: 20100830, end: 20100920
  4. VARENICLINE TARTRATE [Suspect]
     Dosage: 1 MG, IN THE EVENING
     Route: 048
     Dates: start: 20100921, end: 20100101
  5. VARENICLINE TARTRATE [Suspect]
     Dosage: 0.5 MG, 2X/DAY
     Route: 048
     Dates: start: 20100826, end: 20100829

REACTIONS (1)
  - ILLUSION [None]
